FAERS Safety Report 6498383-4 (Version None)
Quarter: 2009Q4

REPORT INFORMATION
  Report Type: 
  Country: None (occurrence: None)
  Receive Date: 20091127
  Receipt Date: 20090901
  Transmission Date: 20100525
  Serious: Yes (Hospitalization)
  Sender: FDA-Public Use
  Company Number: 291192

PATIENT
  Age: 24 Year
  Sex: Male
  Weight: 63.5 kg

DRUGS (2)
  1. NOVOLOG [Suspect]
     Indication: INSULIN-REQUIRING TYPE 2 DIABETES MELLITUS
     Dosage: 4-6 IU, SLIDING SCALE BEFORE MEALS, SUBCUTANEOUS
     Route: 058
     Dates: start: 20040101
  2. CIMETIDINE [Concomitant]

REACTIONS (1)
  - BLOOD GLUCOSE INCREASED [None]
